FAERS Safety Report 9008917 (Version 3)
Quarter: 2013Q1

REPORT INFORMATION
  Report Type: Spontaneous
  Country: FR (occurrence: FR)
  Receive Date: 20130111
  Receipt Date: 20130311
  Transmission Date: 20140127
  Serious: Yes (Hospitalization)
  Sender: FDA-Public Use
  Company Number: FR-RANBAXY-2013RR-64021

PATIENT
  Age: 58 Year
  Sex: Female

DRUGS (6)
  1. AMOXICILLIN [Suspect]
     Indication: NASOPHARYNGITIS
     Dosage: UNK
     Route: 065
     Dates: start: 201204, end: 201204
  2. AUGMENTIN [Suspect]
     Indication: EAR INFECTION
     Dosage: UNK
     Route: 065
     Dates: start: 20120422, end: 20120424
  3. ADVIL [Suspect]
     Indication: NASOPHARYNGITIS
     Dosage: UNK
     Route: 065
     Dates: start: 201204, end: 201204
  4. MUCOMYST [Suspect]
     Indication: NASOPHARYNGITIS
     Dosage: UNK
     Route: 065
     Dates: start: 201204
  5. SOLUPRED [Suspect]
     Indication: EAR INFECTION
     Dosage: UNK
     Route: 065
     Dates: start: 20120422, end: 20120424
  6. PARACETAMOL [Concomitant]
     Indication: PRODUCT USED FOR UNKNOWN INDICATION
     Dosage: UNK
     Route: 065

REACTIONS (12)
  - Agranulocytosis [Recovered/Resolved]
  - Thrombocytopenia [Recovered/Resolved]
  - Pyrexia [Recovering/Resolving]
  - Oropharyngeal pain [Unknown]
  - Odynophagia [Unknown]
  - Ear pain [Unknown]
  - Rhinorrhoea [Unknown]
  - Lymphadenopathy [Unknown]
  - Bone marrow failure [Unknown]
  - Bone marrow toxicity [Unknown]
  - Inflammation [Unknown]
  - Anaemia [Unknown]
